FAERS Safety Report 7321215-9 (Version None)
Quarter: 2011Q1

REPORT INFORMATION
  Report Type: 
  Country: None (occurrence: None)
  Receive Date: 20110228
  Receipt Date: 20110221
  Transmission Date: 20110831
  Serious: Yes (Other)
  Sender: FDA-Public Use
  Company Number: US-ABBOTT-11P-163-0707334-00

PATIENT
  Age: 64 Year
  Sex: Female

DRUGS (3)
  1. HUMIRA [Suspect]
     Indication: RHEUMATOID ARTHRITIS
  2. LORAZEPAM [Concomitant]
     Indication: ANXIETY
  3. DOXEPIN [Concomitant]
     Indication: DEPRESSION

REACTIONS (4)
  - INJECTION SITE HAEMORRHAGE [None]
  - INJECTION SITE PAIN [None]
  - TRANSIENT ISCHAEMIC ATTACK [None]
  - BRAIN NEOPLASM [None]
